FAERS Safety Report 24567057 (Version 1)
Quarter: 2024Q4

REPORT INFORMATION
  Report Type: Spontaneous
  Country: US (occurrence: US)
  Receive Date: 20241030
  Receipt Date: 20241030
  Transmission Date: 20250115
  Serious: Yes (Hospitalization)
  Sender: ALKERMES
  Company Number: US-ALKERMES INC.-ALK-2024-002731

PATIENT
  Sex: Female

DRUGS (6)
  1. LYBALVI [Suspect]
     Active Substance: OLANZAPINE\SAMIDORPHAN L-MALATE
     Indication: Bipolar II disorder
     Dosage: UNK MILLIGRAM, QD
     Route: 048
  2. LYBALVI [Suspect]
     Active Substance: OLANZAPINE\SAMIDORPHAN L-MALATE
     Indication: Borderline personality disorder
  3. HYDROCODONE [Suspect]
     Active Substance: HYDROCODONE
     Indication: Back disorder
     Dosage: UNK
     Route: 065
     Dates: start: 2024, end: 2024
  4. OLANZAPINE [Concomitant]
     Active Substance: OLANZAPINE
     Indication: Product used for unknown indication
     Dosage: 380 UNK
     Route: 065
     Dates: start: 2024
  5. PROPRANOLOL [Concomitant]
     Active Substance: PROPRANOLOL HYDROCHLORIDE
     Indication: Product used for unknown indication
     Dosage: 40 MILLIGRAM, QD
     Route: 048
  6. AMBIEN [Concomitant]
     Active Substance: ZOLPIDEM TARTRATE
     Indication: Product used for unknown indication
     Dosage: 5 MILLIGRAM, QHS
     Route: 048

REACTIONS (6)
  - Back disorder [Unknown]
  - Contraindicated product administered [Recovered/Resolved]
  - Emotional disorder [Not Recovered/Not Resolved]
  - Off label use [Recovered/Resolved]
  - Drug withdrawal syndrome [Recovered/Resolved]
  - Akathisia [Not Recovered/Not Resolved]

NARRATIVE: CASE EVENT DATE: 20240101
